FAERS Safety Report 21017957 (Version 9)
Quarter: 2025Q4

REPORT INFORMATION
  Report Type: Report from Study
  Country: CA (occurrence: CA)
  Receive Date: 20220628
  Receipt Date: 20251208
  Transmission Date: 20260117
  Serious: Yes (Other)
  Sender: TAKEDA
  Company Number: CA-TAKEDA-2020TUS051036

PATIENT
  Age: 51 Year
  Sex: Male

DRUGS (37)
  1. VEDOLIZUMAB [Suspect]
     Active Substance: VEDOLIZUMAB
     Indication: Crohn^s disease
     Dosage: 300 MILLIGRAM
  2. VEDOLIZUMAB [Suspect]
     Active Substance: VEDOLIZUMAB
     Dosage: 300 MILLIGRAM, Q4WEEKS
     Dates: start: 20201211
  3. VEDOLIZUMAB [Suspect]
     Active Substance: VEDOLIZUMAB
     Dosage: 300 MILLIGRAM, Q4WEEKS
  4. VEDOLIZUMAB [Suspect]
     Active Substance: VEDOLIZUMAB
     Dosage: 300 MILLIGRAM, Q4WEEKS
  5. VEDOLIZUMAB [Suspect]
     Active Substance: VEDOLIZUMAB
     Dosage: 300 MILLIGRAM, Q4WEEKS
  6. VEDOLIZUMAB [Suspect]
     Active Substance: VEDOLIZUMAB
     Dosage: 300 MILIGRAM, Q4WEEKS
  7. VEDOLIZUMAB [Suspect]
     Active Substance: VEDOLIZUMAB
     Dosage: 300 MILIGRAM, Q4WEEKS
  8. VEDOLIZUMAB [Suspect]
     Active Substance: VEDOLIZUMAB
     Dosage: 300 MILLIGRAM, Q4WEEKS
  9. VEDOLIZUMAB [Suspect]
     Active Substance: VEDOLIZUMAB
     Dosage: 300 MILLIGRAM, Q4WEEKS
  10. VEDOLIZUMAB [Suspect]
     Active Substance: VEDOLIZUMAB
     Dosage: 300 MILLIGRAM, Q4WEEKS
  11. VEDOLIZUMAB [Suspect]
     Active Substance: VEDOLIZUMAB
     Dosage: 300 MILLIGRAM, Q4WEEKS
  12. VEDOLIZUMAB [Suspect]
     Active Substance: VEDOLIZUMAB
     Dosage: 300 MILLIGRAM, Q4WEEKS
  13. VEDOLIZUMAB [Suspect]
     Active Substance: VEDOLIZUMAB
     Dosage: 300 MILLIGRAM, Q4WEEKS
  14. VEDOLIZUMAB [Suspect]
     Active Substance: VEDOLIZUMAB
     Dosage: 300 MILLIGRAM, Q4WEEKS
  15. VEDOLIZUMAB [Suspect]
     Active Substance: VEDOLIZUMAB
     Dosage: 300 MILLIGRAM, Q4WEEKS
  16. PREDNISONE [Concomitant]
     Active Substance: PREDNISONE
     Dosage: 40 MILLIGRAM
  17. PREDNISONE [Concomitant]
     Active Substance: PREDNISONE
     Dosage: 30 MILLIGRAM
  18. PREDNISONE [Concomitant]
     Active Substance: PREDNISONE
     Dosage: 10 MILLIGRAM
  19. PREDNISONE [Concomitant]
     Active Substance: PREDNISONE
     Dosage: 8 MILLIGRAM
  20. PREDNISONE [Concomitant]
     Active Substance: PREDNISONE
     Dosage: 20 MILLIGRAM
  21. CLONAZEPAM [Concomitant]
     Active Substance: CLONAZEPAM
     Indication: Anxiety
     Dosage: UNK
  22. TRAZODONE [Concomitant]
     Active Substance: TRAZODONE HYDROCHLORIDE
     Indication: Depression
     Dosage: 50 MILLIGRAM, QD
  23. SERTRALINE [Concomitant]
     Active Substance: SERTRALINE HYDROCHLORIDE
     Indication: Depression
     Dosage: UNK
  24. HYDROMORPHONE [Concomitant]
     Active Substance: HYDROMORPHONE
     Indication: Headache
     Dosage: 3 MILLIGRAM, QD
  25. HYDROMORPHONE [Concomitant]
     Active Substance: HYDROMORPHONE
     Dosage: UNK
  26. ATORVASTATIN [Concomitant]
     Active Substance: ATORVASTATIN
     Indication: Hypercholesterolaemia
     Dosage: UNK
  27. BISOPROLOL [Concomitant]
     Active Substance: BISOPROLOL
     Indication: Myocarditis
     Dosage: UNK UNK, QD
  28. PERINDOPRIL [Concomitant]
     Active Substance: PERINDOPRIL
     Indication: Myocarditis
     Dosage: UNK
  29. LIPITOR [Concomitant]
     Active Substance: ATORVASTATIN CALCIUM
     Dosage: 40 MILLIGRAM, QD
  30. ABILIFY [Concomitant]
     Active Substance: ARIPIPRAZOLE
     Dosage: UNK UNK, QD
  31. DAPSONE [Concomitant]
     Active Substance: DAPSONE
     Dosage: UNK UNK, QD
  32. MODAFINIL [Concomitant]
     Active Substance: MODAFINIL
     Dosage: UNK
  33. FLUOXETINE [Concomitant]
     Active Substance: FLUOXETINE HYDROCHLORIDE
     Dosage: 20 MILLIGRAM
  34. FLUOXETINE [Concomitant]
     Active Substance: FLUOXETINE HYDROCHLORIDE
     Dosage: 10 MILLIGRAM
  35. TRINTELLIX [Concomitant]
     Active Substance: VORTIOXETINE HYDROBROMIDE
     Dosage: 5 MILLIGRAM
     Dates: start: 20230901, end: 20230908
  36. TRINTELLIX [Concomitant]
     Active Substance: VORTIOXETINE HYDROBROMIDE
     Dosage: 7.5 MILLIGRAM
  37. B12 [Concomitant]
     Dosage: UNK UNK, QD

REACTIONS (20)
  - Crohn^s disease [Not Recovered/Not Resolved]
  - Haematochezia [Unknown]
  - Frequent bowel movements [Recovering/Resolving]
  - Diarrhoea [Recovering/Resolving]
  - Abdominal discomfort [Unknown]
  - Abdominal pain lower [Not Recovered/Not Resolved]
  - Chest discomfort [Unknown]
  - Depression [Unknown]
  - Anal skin tags [Unknown]
  - Depressed mood [Unknown]
  - Mouth ulceration [Unknown]
  - Therapeutic product effect decreased [Unknown]
  - Off label use [Unknown]
  - Blood iron decreased [Recovering/Resolving]
  - Weight decreased [Not Recovered/Not Resolved]
  - Defaecation urgency [Unknown]
  - Abdominal pain [Unknown]
  - Dyspepsia [Recovering/Resolving]
  - Malaise [Recovered/Resolved]
  - Nasopharyngitis [Recovered/Resolved]

NARRATIVE: CASE EVENT DATE: 20201211
